FAERS Safety Report 20465552 (Version 1)
Quarter: 2022Q1

REPORT INFORMATION
  Report Type: Spontaneous
  Country: US (occurrence: US)
  Receive Date: 20220212
  Receipt Date: 20220212
  Transmission Date: 20220424
  Serious: No
  Sender: FDA-Public Use
  Company Number: US-NOVARTISTESTPH-NVSC2022US030107

PATIENT
  Sex: Female

DRUGS (1)
  1. HYDROCORTISONE\NEOMYCIN SULFATE\POLYMYXIN B SULFATE [Suspect]
     Active Substance: HYDROCORTISONE\NEOMYCIN SULFATE\POLYMYXIN B SULFATE
     Indication: Product used for unknown indication
     Dosage: UNK, TID
     Route: 065
     Dates: start: 20220119

REACTIONS (5)
  - Hypersensitivity [Unknown]
  - Ear swelling [Unknown]
  - Erythema [Unknown]
  - Hearing disability [Unknown]
  - Product dose omission issue [Unknown]
